FAERS Safety Report 6986331-X (Version None)
Quarter: 2010Q3

REPORT INFORMATION
  Report Type: 
  Country: None (occurrence: None)
  Receive Date: 20100915
  Receipt Date: 20090623
  Transmission Date: 20110219
  Serious: No
  Sender: FDA-Public Use
  Company Number: US-WYE-H09905209

PATIENT
  Sex: Male

DRUGS (1)
  1. PRISTIQ [Suspect]
     Indication: DEPRESSION
     Dosage: 50 MG - FREQUENCY UNSPECIFIED
     Route: 048
     Dates: start: 20090622, end: 20090623

REACTIONS (3)
  - CONFUSIONAL STATE [None]
  - DIZZINESS [None]
  - LETHARGY [None]
